FAERS Safety Report 6837997-6 (Version None)
Quarter: 2010Q3

REPORT INFORMATION
  Report Type: 
  Country: None (occurrence: None)
  Receive Date: 20100713
  Receipt Date: 20070530
  Transmission Date: 20110219
  Serious: No
  Sender: FDA-Public Use
  Company Number: US-PFIZER INC-2007044825

PATIENT
  Sex: Female
  Weight: 61.2 kg

DRUGS (3)
  1. CHANTIX [Suspect]
     Indication: SMOKING CESSATION THERAPY
     Dates: start: 20070525
  2. WELLBUTRIN [Concomitant]
     Indication: DEPRESSION
     Dates: start: 20070415
  3. VITAMINS [Concomitant]

REACTIONS (3)
  - FATIGUE [None]
  - SOMNOLENCE [None]
  - THINKING ABNORMAL [None]
